FAERS Safety Report 8201317-5 (Version None)
Quarter: 2012Q1

REPORT INFORMATION
  Report Type: 
  Country: None (occurrence: None)
  Receive Date: 20120312
  Receipt Date: 20120306
  Transmission Date: 20120608
  Serious: Yes (Death, Hospitalization)
  Sender: FDA-Public Use
  Company Number: PHHY2012FR011598

PATIENT
  Sex: Male
  Weight: 98 kg

DRUGS (4)
  1. AMOXICILLIN [Concomitant]
     Indication: BRONCHITIS
     Dosage: UNK
     Route: 048
     Dates: start: 20120102, end: 20120110
  2. IPERTEN [Concomitant]
     Dosage: UNK
     Dates: start: 20100108
  3. ONBREZ [Suspect]
     Indication: CHRONIC OBSTRUCTIVE PULMONARY DISEASE
     Dates: start: 20120123
  4. ANTIHYPERTENSIVES [Concomitant]

REACTIONS (2)
  - CIRCULATORY COLLAPSE [None]
  - ANAPHYLACTIC SHOCK [None]
